FAERS Safety Report 9565757 (Version 1)
Quarter: 2013Q3

REPORT INFORMATION
  Report Type: Spontaneous
  Country: US (occurrence: US)
  Receive Date: 20130930
  Receipt Date: 20130930
  Transmission Date: 20140515
  Serious: Yes (Death)
  Sender: FDA-Public Use
  Company Number: US-GLAXOSMITHKLINE-A1043327A

PATIENT
  Age: 62 Year
  Sex: Female

DRUGS (1)
  1. VOTRIENT [Suspect]
     Indication: ILL-DEFINED DISORDER
     Dosage: 800MG PER DAY
     Route: 048
     Dates: start: 20130715

REACTIONS (1)
  - Death [Fatal]
